FAERS Safety Report 5591227-4 (Version None)
Quarter: 2008Q1

REPORT INFORMATION
  Report Type: 
  Country: None (occurrence: None)
  Receive Date: 20080115
  Receipt Date: 20071026
  Transmission Date: 20080703
  Serious: No
  Sender: FDA-Public Use
  Company Number: US-ABBOTT-07P-163-0422881-00

PATIENT
  Sex: Male
  Weight: 74.91 kg

DRUGS (1)
  1. HYTRIN [Suspect]
     Indication: DRUG USE FOR UNKNOWN INDICATION
     Route: 048
     Dates: start: 20010101, end: 20010101

REACTIONS (1)
  - LOSS OF CONSCIOUSNESS [None]
